FAERS Safety Report 7306830-0 (Version None)
Quarter: 2011Q1

REPORT INFORMATION
  Report Type: 
  Country: None (occurrence: None)
  Receive Date: 20110120
  Receipt Date: 20101013
  Transmission Date: 20110831
  Serious: Yes (Other)
  Sender: FDA-Public Use
  Company Number: 015854

PATIENT
  Age: 78 Year
  Sex: Female

DRUGS (9)
  1. ATACAND [Concomitant]
  2. VESICARE [Concomitant]
  3. EXELON [Concomitant]
  4. NAMENDA [Concomitant]
  5. CEFUROXIME [Concomitant]
  6. ASPIRIN [Concomitant]
  7. FOSAMAX [Concomitant]
  8. VERAPAMIL HCL [Suspect]
     Indication: HYPERTENSION
  9. LEVOTHYROXINE SODIUM [Concomitant]

REACTIONS (1)
  - SYNCOPE [None]
